FAERS Safety Report 13367709 (Version 1)
Quarter: 2017Q1

REPORT INFORMATION
  Report Type: Spontaneous
  Country: US (occurrence: US)
  Receive Date: 20170323
  Receipt Date: 20170323
  Transmission Date: 20170429
  Serious: Yes (Hospitalization)
  Sender: FDA-Public Use
  Company Number: None

PATIENT
  Age: 54 Year
  Sex: Female
  Weight: 102.5 kg

DRUGS (21)
  1. LISINOPRIL (PRINIVIL; ZESTRIL) [Concomitant]
     Active Substance: LISINOPRIL
  2. NORCO [Concomitant]
     Active Substance: ACETAMINOPHEN\HYDROCODONE BITARTRATE
  3. KELP [Concomitant]
     Active Substance: KELP
  4. EFFEXOR XR [Concomitant]
     Active Substance: VENLAFAXINE HYDROCHLORIDE
  5. CYCLOBENZAPRINE (FLEXERIL) [Concomitant]
  6. IODINE. [Concomitant]
     Active Substance: IODINE
  7. PAROXETINE (PAXIL) [Concomitant]
  8. VIIBRYD [Suspect]
     Active Substance: VILAZODONE HYDROCHLORIDE
     Indication: DEPRESSION
     Route: 048
  9. HYDROCODONE-ACETAMINOPHEN [Concomitant]
     Active Substance: ACETAMINOPHEN\HYDROCODONE
  10. LIDOCAINE (LIDODERM) [Concomitant]
  11. VIIBRYD [Concomitant]
     Active Substance: VILAZODONE HYDROCHLORIDE
  12. PRILOSEC [Concomitant]
     Active Substance: OMEPRAZOLE MAGNESIUM
  13. SULINDAC (CLINORIL) [Concomitant]
  14. ZANAFLEX [Concomitant]
     Active Substance: TIZANIDINE HYDROCHLORIDE
  15. TRAZODONE (DESYREL) [Concomitant]
  16. HYOSCYAMINE (LEVSIN) [Concomitant]
  17. PRAMIPEXOLE (MIRAPEX) [Concomitant]
  18. OXYBUTYNIN XL (DITROPAN XL) [Concomitant]
  19. SENNOSIDES (SENNA) [Concomitant]
  20. SYNTHROID [Concomitant]
     Active Substance: LEVOTHYROXINE SODIUM
  21. ERGOCALCIFEROL (VITAMIN D2; DRISDOL) [Concomitant]

REACTIONS (1)
  - Cholecystitis acute [None]

NARRATIVE: CASE EVENT DATE: 20170320
